FAERS Safety Report 16634436 (Version 2)
Quarter: 2019Q3

REPORT INFORMATION
  Report Type: Spontaneous
  Country: FR (occurrence: FR)
  Receive Date: 20190726
  Receipt Date: 20190828
  Transmission Date: 20191004
  Serious: Yes (Other)
  Sender: FDA-Public Use
  Company Number: FR-TEVA-2019-FR-1082108

PATIENT
  Age: 46 Year
  Sex: Female

DRUGS (31)
  1. FLUCORTAC 50 MICROGRAMMES, COMPRIME SECABLE [Suspect]
     Active Substance: FLUDROCORTISONE ACETATE
     Indication: ADRENAL INSUFFICIENCY
     Dosage: 50 MICROGRAM
     Route: 048
     Dates: start: 20190509, end: 20190514
  2. SUFENTANIL MYLAN 50 MICROGRAMMES/ML, SOLUTION INJECTABLE [Suspect]
     Active Substance: SUFENTANIL
     Indication: SEDATION
     Dosage: 750MICROGRAM
     Route: 042
     Dates: start: 20190509, end: 20190512
  3. KETAMINE RENAUDIN 50 MG/ML, SOLUTION INJECTABLE [Suspect]
     Active Substance: KETAMINE HYDROCHLORIDE
     Indication: ANAESTHESIA
     Dosage: 250MILLIGRAM
     Route: 042
     Dates: start: 20190509, end: 20190509
  4. MIDAZOLAM [Suspect]
     Active Substance: MIDAZOLAM HYDROCHLORIDE
     Indication: SEDATION
     Dosage: 50 MILLIGRAM
     Route: 042
     Dates: start: 20190509, end: 20190511
  5. TAZOCILLINE [Suspect]
     Active Substance: PIPERACILLIN SODIUM\TAZOBACTAM SODIUM
     Indication: FEBRILE BONE MARROW APLASIA
     Dosage: 12 GRAM
     Route: 042
     Dates: start: 20190507, end: 20190516
  6. NIMBEX [Suspect]
     Active Substance: CISATRACURIUM BESYLATE
     Indication: SEDATION
     Dosage: 120 MILLIGRAM
     Route: 042
     Dates: start: 20190509, end: 20190511
  7. EFFERALGAN [Suspect]
     Active Substance: ACETAMINOPHEN
     Indication: PYREXIA
     Dosage: 4 GRAM
     Route: 048
     Dates: start: 20190511, end: 20190522
  8. PANTOPRAZOLE [Suspect]
     Active Substance: PANTOPRAZOLE
     Indication: PROPHYLAXIS AGAINST GASTROINTESTINAL ULCER
     Dosage: 80MG
     Route: 048
     Dates: start: 20190522
  9. TIORFAN 100 MG, G?LULE [Suspect]
     Active Substance: RACECADOTRIL
     Indication: DIARRHOEA
     Dosage: IF NEED BE
     Route: 048
     Dates: start: 20190522
  10. HYDROCORTISONE UPJOHN 100 MG, PREPARATION INJECTABLE [Suspect]
     Active Substance: HYDROCORTISONE SODIUM SUCCINATE
     Indication: ADRENAL INSUFFICIENCY
     Dosage: 200MILLIGRAM
     Route: 042
     Dates: start: 20190509, end: 20190514
  11. PANTOPRAZOLE ARROW 40 MG, POUDRE POUR SOLUTION INJECTABLE (IV) [Suspect]
     Active Substance: PANTOPRAZOLE SODIUM
     Indication: GASTRIC MUCOSAL LESION
     Dosage: 80 MILLIGRAM
     Route: 042
     Dates: start: 20190509, end: 20190520
  12. ESMERON [Suspect]
     Active Substance: ROCURONIUM BROMIDE
     Indication: ENDOTRACHEAL INTUBATION
     Dosage: 80 MILLIGRAM
     Route: 042
     Dates: start: 20190509, end: 20190509
  13. PROPOFOL LIPURO 2 % (20 MG/ML), EMULSION INJECTABLE OU POUR PERFUSION [Suspect]
     Active Substance: PROPOFOL
     Indication: SEDATION
     Dosage: 1 GRAM
     Route: 042
     Dates: start: 20190512, end: 20190516
  14. HEPARINE SODIQUE PANPHARMA [Suspect]
     Active Substance: HEPARIN SODIUM
     Indication: THROMBOSIS
     Dosage: THEN 10,000 IU/DAY
     Route: 042
     Dates: start: 20190510, end: 20190514
  15. TIORFAN [Suspect]
     Active Substance: RACECADOTRIL
     Indication: DIARRHOEA
     Dosage: 300 MILLIGRAM
     Route: 048
     Dates: start: 20190510, end: 20190511
  16. NOVORAPID [Suspect]
     Active Substance: INSULIN ASPART
     Indication: DIABETES MELLITUS
     Dosage: 25 IU (INTERNATIONAL UNIT)
     Route: 042
     Dates: start: 20190509, end: 20190521
  17. MORPHINE RENAUDIN [Suspect]
     Active Substance: MORPHINE
     Indication: PAIN
     Dosage: 6 MILLIGRAM
     Route: 042
     Dates: start: 20190518, end: 20190518
  18. VANCOMYCINE SANDOZ 1 G, POUDRE POUR SOLUTION POUR PERFUSION [Suspect]
     Active Substance: VANCOMYCIN
     Indication: FEBRILE BONE MARROW APLASIA
     Dosage: 1020 MILLIGRAM
     Route: 042
     Dates: start: 20190507, end: 20190511
  19. SPECIAFOLDINE [Suspect]
     Active Substance: FOLIC ACID
     Indication: ANAEMIA
     Dosage: 5 MILLIGRAM
     Route: 048
     Dates: start: 20190520
  20. LASILIX [Suspect]
     Active Substance: FUROSEMIDE
     Indication: OEDEMA
     Dosage: 80 MILLIGRAM
     Route: 042
     Dates: start: 20190518, end: 20190518
  21. SPASFON (PHLOROGLUCINOL) [Suspect]
     Active Substance: PHLOROGLUCINOL
     Indication: PAIN
     Dosage: 1 DOSAGE FORMS, A LIGHT BULB
     Route: 042
     Dates: start: 20190509, end: 20190509
  22. DOLIPRANE [Suspect]
     Active Substance: ACETAMINOPHEN
     Indication: PYREXIA
     Dosage: 4 GRAM
     Route: 048
     Dates: start: 20190522
  23. NORADRENALINE MYLAN [Suspect]
     Active Substance: NOREPINEPHRINE\NOREPINEPHRINE BITARTRATE
     Indication: HAEMODYNAMIC INSTABILITY
     Dosage: 24 MILLIGRAM, THEN 8 MG
     Route: 042
     Dates: start: 20190509, end: 20190512
  24. PARACETAMOL B BRAUN 10 MG/ML, SOLUTION POUR PERFUSION [Suspect]
     Active Substance: ACETAMINOPHEN
     Indication: PYREXIA
     Dosage: 4 GRAM
     Route: 042
     Dates: start: 20190509, end: 20190511
  25. ROVAMYCINE (SPIRAMYCIN) [Suspect]
     Active Substance: SPIRAMYCIN
     Indication: FEBRILE BONE MARROW APLASIA
     Dosage: 9 MU
     Route: 048
     Dates: start: 20190507, end: 20190516
  26. LOVENOX [Suspect]
     Active Substance: ENOXAPARIN SODIUM
     Indication: PROPHYLAXIS
     Dosage: 4000 IU (INTERNATIONAL UNIT)
     Route: 058
     Dates: start: 20190522, end: 20190607
  27. CIFLOX [Suspect]
     Active Substance: CIPROFLOXACIN
     Indication: FEBRILE BONE MARROW APLASIA
     Dosage: 800 MILLIGRAM
     Route: 042
     Dates: start: 20190507, end: 20190508
  28. CIRCADIN 2 MG, COMPRIME A LIBERATION PROLONGEE [Suspect]
     Active Substance: MELATONIN
     Indication: INSOMNIA
     Dosage: 2 MILLIGRAM
     Route: 048
     Dates: start: 20190522
  29. SMECTA [Suspect]
     Active Substance: MONTMORILLONITE
     Indication: DIARRHOEA
     Route: 048
     Dates: start: 20190522, end: 20190603
  30. LANSOPRAZOLE ARROW 30 MG, G?LULE GASTRO-R?SISTANTE [Suspect]
     Active Substance: LANSOPRAZOLE
     Indication: PEPTIC ULCER
     Route: 048
     Dates: start: 20190522, end: 20190603
  31. ATARAX [Suspect]
     Active Substance: HYDROXYZINE HYDROCHLORIDE
     Indication: ANXIETY
     Route: 048
     Dates: start: 20190530, end: 20190603

REACTIONS (1)
  - Rash maculo-papular [Recovered/Resolved]

NARRATIVE: CASE EVENT DATE: 20190528
